FAERS Safety Report 18904426 (Version 1)
Quarter: 2021Q1

REPORT INFORMATION
  Report Type: Report from Study
  Country: GB (occurrence: GB)
  Receive Date: 20210217
  Receipt Date: 20210217
  Transmission Date: 20210420
  Serious: Yes (Hospitalization)
  Sender: FDA-Public Use
  Company Number: GB-PFIZER INC-2021138927

PATIENT
  Age: 63 Year
  Sex: Male
  Weight: 79 kg

DRUGS (14)
  1. OXALIPLATIN. [Suspect]
     Active Substance: OXALIPLATIN
     Indication: OESOPHAGEAL ADENOCARCINOMA
     Dosage: 135 MG
     Route: 042
     Dates: start: 20180302
  2. AVELUMAB [Suspect]
     Active Substance: AVELUMAB
     Indication: OESOPHAGEAL ADENOCARCINOMA
     Dosage: 770 MG
     Route: 042
     Dates: start: 20180404, end: 20180404
  3. DOCETAXEL. [Suspect]
     Active Substance: DOCETAXEL
     Dosage: 748 MG
     Route: 042
     Dates: start: 20180404
  4. LOPERAMIDE [Concomitant]
     Active Substance: LOPERAMIDE
     Indication: DIARRHOEA
     Dosage: 4 MG, AS NEEDED
     Dates: start: 20180212
  5. FLUOROURACIL. [Suspect]
     Active Substance: FLUOROURACIL
     Indication: OESOPHAGEAL ADENOCARCINOMA
     Dosage: 3950 MG
     Route: 042
     Dates: start: 20180302
  6. VITAMIN D [ERGOCALCIFEROL] [Concomitant]
     Active Substance: ERGOCALCIFEROL
     Indication: VITAMIN SUPPLEMENTATION
     Dosage: UNK
     Dates: start: 20180207
  7. FILGRASTINE [Concomitant]
     Active Substance: FILGRASTIM
     Dosage: 400 UG, 1X/DAY
     Dates: start: 20180222
  8. PARACETAMOL [Concomitant]
     Active Substance: ACETAMINOPHEN
     Indication: PAIN
     Dosage: 1 G, AS NEEDED
     Dates: start: 20180316
  9. OXALIPLATIN. [Suspect]
     Active Substance: OXALIPLATIN
     Dosage: 135 MG
     Route: 042
     Dates: start: 20180404
  10. DOCETAXEL. [Suspect]
     Active Substance: DOCETAXEL
     Indication: OESOPHAGEAL ADENOCARCINOMA
     Dosage: 748 MG
     Route: 042
     Dates: start: 20180302
  11. OMEPRAZOLE. [Concomitant]
     Active Substance: OMEPRAZOLE
     Indication: GASTROOESOPHAGEAL REFLUX DISEASE
     Dosage: 20 MG
     Route: 048
     Dates: start: 20180319
  12. DOMPERIDONE [Concomitant]
     Active Substance: DOMPERIDONE
     Indication: ANTIEMETIC SUPPORTIVE CARE
     Dosage: 10 MG, AS NEEDED
     Dates: start: 20180222
  13. FLUOROURACIL. [Suspect]
     Active Substance: FLUOROURACIL
     Dosage: 3950 MG
     Route: 042
     Dates: start: 20180404
  14. PREDNISONE. [Concomitant]
     Active Substance: PREDNISONE
     Dosage: 60 MG WEANING DOSE
     Dates: start: 20180427

REACTIONS (1)
  - Enterocolitis [Recovering/Resolving]

NARRATIVE: CASE EVENT DATE: 20180508
